FAERS Safety Report 9880676 (Version 1)
Quarter: 2014Q1

REPORT INFORMATION
  Report Type: Spontaneous
  Country: KR (occurrence: None)
  Receive Date: 20140205
  Receipt Date: 20140205
  Transmission Date: 20141002
  Serious: Yes (Other)
  Sender: FDA-Public Use
  Company Number: 2014MB000001

PATIENT
  Sex: 0

DRUGS (1)
  1. MITOMYCIN [Suspect]
     Indication: DRUG ADMINISTRATION ERROR

REACTIONS (4)
  - Iris atrophy [None]
  - Corneal oedema [None]
  - Cystoid macular oedema [None]
  - Visual field defect [None]
